FAERS Safety Report 8485495-9 (Version None)
Quarter: 2012Q3

REPORT INFORMATION
  Report Type: 
  Country: None (occurrence: None)
  Receive Date: 20120703
  Receipt Date: 20120626
  Transmission Date: 20120928
  Serious: Yes (Disabling)
  Sender: FDA-Public Use
  Company Number: US-PERRIGO-12US005538

PATIENT
  Sex: Female
  Weight: 68.027 kg

DRUGS (4)
  1. TRIAMCINOLONE ACETONIDE [Suspect]
     Indication: VULVOVAGINAL DISCOMFORT
     Dosage: ONE APPLICATION, DAILY
     Route: 067
     Dates: start: 20110506, end: 20110515
  2. HYDROCHLOROTHIAZDE TAB [Concomitant]
     Indication: FLUID RETENTION
     Dosage: UNK
     Route: 048
  3. LYRICA [Concomitant]
     Indication: NEURALGIA
     Dosage: UNK
     Route: 048
  4. EFFEXOR [Concomitant]
     Indication: MENOPAUSE
     Dosage: UNK
     Route: 048

REACTIONS (16)
  - VULVOVAGINAL ERYTHEMA [None]
  - PAIN IN EXTREMITY [None]
  - VULVOVAGINAL BURNING SENSATION [None]
  - ATROPHIC VULVOVAGINITIS [None]
  - MUSCLE TIGHTNESS [None]
  - MUSCLE SPASMS [None]
  - INCORRECT ROUTE OF DRUG ADMINISTRATION [None]
  - VAGINAL INFLAMMATION [None]
  - GYNAECOLOGICAL EXAMINATION ABNORMAL [None]
  - MALAISE [None]
  - MUSCULOSKELETAL PAIN [None]
  - PAIN [None]
  - CYSTITIS [None]
  - BACK PAIN [None]
  - VULVOVAGINAL PAIN [None]
  - DYSPAREUNIA [None]
